FAERS Safety Report 8855234 (Version 2)
Quarter: 2013Q3

REPORT INFORMATION
  Report Type: Spontaneous
  Country: US (occurrence: US)
  Receive Date: 20121023
  Receipt Date: 20130930
  Transmission Date: 20140515
  Serious: No
  Sender: FDA-Public Use
  Company Number: US-AMGEN-USASP2012059974

PATIENT
  Age: 55 Year
  Sex: Female
  Weight: 80.91 kg

DRUGS (7)
  1. ENBREL [Suspect]
     Indication: RHEUMATOID ARTHRITIS
     Dosage: 50 MG, QWK
     Route: 058
  2. ATENOLOL [Concomitant]
     Dosage: 25 MG, UNK
  3. ALLEGRA [Concomitant]
     Dosage: 60 MG, UNK
  4. NASONEX [Concomitant]
     Dosage: 50 MUG/AC, (NEX) UNK
  5. CALCIUM [Concomitant]
     Dosage: 500 UNK, UNK
  6. FISH OIL [Concomitant]
     Dosage: 1000 MG, UNK
  7. MULTIVITAMINS, PLAIN [Concomitant]
     Dosage: UNK

REACTIONS (2)
  - Sinusitis [Recovered/Resolved]
  - Nasal polyps [Unknown]
